FAERS Safety Report 9580862 (Version 1)
Quarter: 2013Q4

REPORT INFORMATION
  Report Type: Spontaneous
  Country: US (occurrence: None)
  Receive Date: 20131001
  Receipt Date: 20131001
  Transmission Date: 20140711
  Serious: Yes (Other)
  Sender: FDA-Public Use
  Company Number: None

PATIENT
  Age: 81 Year
  Sex: Male
  Weight: 91.63 kg

DRUGS (2)
  1. GERI-HYDROLAC [Suspect]
     Indication: DRY SKIN
     Dosage: APPLY THIN LAYER TO SKIN, APPLIED TO A SURFACE, USUALLY THE SKIN
     Route: 061
     Dates: start: 20130929, end: 20130930
  2. GERI-HYDROLAC [Suspect]
     Indication: PRURITUS
     Dosage: APPLY THIN LAYER TO SKIN, APPLIED TO A SURFACE, USUALLY THE SKIN
     Route: 061
     Dates: start: 20130929, end: 20130930

REACTIONS (2)
  - Dizziness [None]
  - Swelling face [None]
